FAERS Safety Report 19896300 (Version 1)
Quarter: 2021Q3

REPORT INFORMATION
  Report Type: Report from Study
  Country: MX (occurrence: MX)
  Receive Date: 20210929
  Receipt Date: 20210929
  Transmission Date: 20211014
  Serious: Yes (Death)
  Sender: FDA-Public Use
  Company Number: MX-ASTRAZENECA-2021A750173

PATIENT
  Age: 27620 Day
  Sex: Male
  Weight: 70 kg

DRUGS (1)
  1. TAGRISSO [Suspect]
     Active Substance: OSIMERTINIB
     Indication: LUNG NEOPLASM MALIGNANT
     Route: 048
     Dates: start: 20210619, end: 202109

REACTIONS (1)
  - Death [Fatal]

NARRATIVE: CASE EVENT DATE: 20210920
